FAERS Safety Report 7867031-0 (Version None)
Quarter: 2011Q4

REPORT INFORMATION
  Report Type: 
  Country: None (occurrence: None)
  Receive Date: 20111028
  Receipt Date: 20111018
  Transmission Date: 20120403
  Serious: Yes (Other)
  Sender: FDA-Public Use
  Company Number: US-BAYER-2011-052149

PATIENT
  Age: 27 Year
  Sex: Female
  Weight: 95 kg

DRUGS (3)
  1. LAMISIL [Concomitant]
  2. PHENERGAN HCL [Concomitant]
     Dosage: 25 MG, BID
     Route: 048
     Dates: start: 20090717
  3. YAZ [Suspect]
     Indication: ACNE
     Dosage: UNK
     Dates: start: 20050101, end: 20090101

REACTIONS (4)
  - GALLBLADDER DISORDER [None]
  - PAIN [None]
  - CHOLECYSTITIS CHRONIC [None]
  - BILIARY DYSKINESIA [None]
